FAERS Safety Report 8571959-6 (Version None)
Quarter: 2012Q2

REPORT INFORMATION
  Report Type: 
  Country: None (occurrence: None)
  Receive Date: 20120423
  Receipt Date: 20100831
  Transmission Date: 20120825
  Serious: Yes (Other)
  Sender: FDA-Public Use
  Company Number: PHHY2010US55786

PATIENT
  Age: 52 Year
  Sex: Female
  Weight: 31.7 kg

DRUGS (14)
  1. ACTIVASE [Concomitant]
  2. ZOLEDRONIC ACID [Concomitant]
  3. ALBUTEROL [Concomitant]
  4. EXJADE [Suspect]
     Indication: IRON OVERLOAD
     Dosage: 1000 MG/DAY, ORAL
     Route: 048
     Dates: start: 20100601, end: 20100727
  5. DIPHENHYDRAMINE HCL [Concomitant]
  6. COMPAZINE (PROCHLORPERAZINE EDIDSYLATE) [Concomitant]
  7. TAXOL [Suspect]
     Dosage: INTRAVENOUS
     Route: 042
     Dates: start: 20091207, end: 20091207
  8. TOPOTECAN [Concomitant]
     Dates: start: 20091228, end: 20100105
  9. DECARDRON (DEXAMTHASONE SODIUM PHOSPHATE) [Concomitant]
  10. ARANESP [Concomitant]
  11. MORPHINE [Concomitant]
  12. LORAZEPAM [Concomitant]
  13. PEGFILGRASTIM (PEGFILGRASTIM) [Concomitant]
  14. PRILOSEC [Concomitant]

REACTIONS (3)
  - BLOOD CREATININE INCREASED [None]
  - RENAL IMPAIRMENT [None]
  - DRUG INTERACTION [None]
